FAERS Safety Report 8901592 (Version 1)
Quarter: 2012Q4

REPORT INFORMATION
  Report Type: Spontaneous
  Country: AU (occurrence: None)
  Receive Date: 20121105
  Receipt Date: 20121105
  Transmission Date: 20130627
  Serious: Yes (Other)
  Sender: FDA-Public Use
  Company Number: FK201203240

PATIENT
  Age: 49 Year
  Sex: Female

DRUGS (3)
  1. CARBOPLATIN [Suspect]
     Indication: BREAST CANCER
  2. DOCETAXEL (DOCETAXEL) [Concomitant]
  3. TRASTUZUMAB (TRASTUZUMAB) [Concomitant]

REACTIONS (1)
  - Inappropriate antidiuretic hormone secretion [None]
